FAERS Safety Report 18128327 (Version 1)
Quarter: 2020Q3

REPORT INFORMATION
  Report Type: Spontaneous
  Country: PT (occurrence: PT)
  Receive Date: 20200810
  Receipt Date: 20200810
  Transmission Date: 20201103
  Serious: Yes (Other)
  Sender: FDA-Public Use
  Company Number: PT-AUROBINDO-AUR-APL-2018-039495

PATIENT
  Age: 76 Year
  Sex: Female

DRUGS (2)
  1. AMIODARONE [Suspect]
     Active Substance: AMIODARONE
     Indication: ATRIAL FIBRILLATION
     Dosage: 200 MILLIGRAM, ONCE A DAY
     Route: 065
  2. WARFARIN [Concomitant]
     Active Substance: WARFARIN
     Indication: TRANSIENT ISCHAEMIC ATTACK
     Dosage: UNK
     Route: 065

REACTIONS (9)
  - Cerebellar syndrome [Recovered/Resolved]
  - Gait disturbance [Recovered/Resolved]
  - Nystagmus [Recovered/Resolved]
  - Postural tremor [Recovered/Resolved]
  - Dysmetria [Recovered/Resolved]
  - Condition aggravated [Recovered/Resolved]
  - Head titubation [Recovered/Resolved]
  - Dysarthria [Recovered/Resolved]
  - Cognitive disorder [Recovered/Resolved]
